FAERS Safety Report 24091423 (Version 1)
Quarter: 2024Q3

REPORT INFORMATION
  Report Type: Spontaneous
  Country: US (occurrence: US)
  Receive Date: 20240715
  Receipt Date: 20240715
  Transmission Date: 20241016
  Serious: Yes (Other)
  Sender: PFIZER
  Company Number: US-PFIZER INC-PV202400091431

PATIENT

DRUGS (1)
  1. SPIRONOLACTONE [Suspect]
     Active Substance: SPIRONOLACTONE
     Indication: Hereditary spherocytosis
     Dosage: UNK

REACTIONS (6)
  - Large intestine perforation [Unknown]
  - Acne [Unknown]
  - Diarrhoea [Unknown]
  - Hereditary spherocytosis [Unknown]
  - Condition aggravated [Unknown]
  - Off label use [Unknown]
